FAERS Safety Report 7084239-5 (Version None)
Quarter: 2010Q4

REPORT INFORMATION
  Report Type: 
  Country: None (occurrence: None)
  Receive Date: 20101104
  Receipt Date: 20101027
  Transmission Date: 20110411
  Serious: Yes (Other)
  Sender: FDA-Public Use
  Company Number: DE-PFIZER INC-2010136695

PATIENT
  Age: 73 Year
  Sex: Female

DRUGS (1)
  1. DETRUSITOL [Suspect]
     Indication: HYPERTONIC BLADDER
     Dosage: UNK
     Dates: start: 20100801

REACTIONS (12)
  - CONSTIPATION [None]
  - DRY EYE [None]
  - DRY MOUTH [None]
  - DYSPEPSIA [None]
  - ERUCTATION [None]
  - FATIGUE [None]
  - HEADACHE [None]
  - LYMPHOEDEMA [None]
  - NASAL DRYNESS [None]
  - PARAESTHESIA [None]
  - VISION BLURRED [None]
  - VISUAL ACUITY REDUCED [None]
